FAERS Safety Report 11343660 (Version 1)
Quarter: 2015Q3

REPORT INFORMATION
  Report Type: Spontaneous
  Country: US (occurrence: None)
  Receive Date: 20150804
  Receipt Date: 20150804
  Transmission Date: 20151125
  Serious: No
  Sender: FDA-Public Use
  Company Number: 150293

PATIENT
  Age: 60 Year
  Sex: Female
  Weight: 47.63 kg

DRUGS (2)
  1. ACID REFLUX MEDICATION [Concomitant]
     Active Substance: UNSPECIFIED INGREDIENT
  2. SUPREP BOWEL PREP [Suspect]
     Active Substance: MAGNESIUM SULFATE\POTASSIUM SULFATE\SODIUM SULFATE
     Indication: COLONOSCOPY
     Dosage: 2 X 6 OZ. BOTTLE
     Route: 048
     Dates: start: 20150725, end: 20150726

REACTIONS (2)
  - Thinking abnormal [None]
  - Vomiting [None]

NARRATIVE: CASE EVENT DATE: 20150727
